FAERS Safety Report 7372177-X (Version None)
Quarter: 2011Q1

REPORT INFORMATION
  Report Type: 
  Country: None (occurrence: None)
  Receive Date: 20110324
  Receipt Date: 20110315
  Transmission Date: 20110831
  Serious: Yes (Other)
  Sender: FDA-Public Use
  Company Number: CH-SANOFI-AVENTIS-2011SA015740

PATIENT
  Age: 72 Year
  Sex: Male

DRUGS (4)
  1. MULTAQ [Suspect]
     Route: 048
     Dates: start: 20100518, end: 20100629
  2. PRAVASTATIN SODIUM [Suspect]
     Route: 048
     Dates: start: 20080401
  3. PERINDOPRIL [Suspect]
     Route: 048
  4. ASPIRIN [Concomitant]

REACTIONS (6)
  - CHOLESTATIC LIVER INJURY [None]
  - HEPATITIS [None]
  - ALANINE AMINOTRANSFERASE INCREASED [None]
  - GAMMA-GLUTAMYLTRANSFERASE INCREASED [None]
  - ASPARTATE AMINOTRANSFERASE INCREASED [None]
  - BLOOD ALKALINE PHOSPHATASE INCREASED [None]
